FAERS Safety Report 10032782 (Version 3)
Quarter: 2014Q1

REPORT INFORMATION
  Report Type: Spontaneous
  Country: CN (occurrence: CN)
  Receive Date: 20140324
  Receipt Date: 20140328
  Transmission Date: 20141002
  Serious: Yes (Life-Threatening)
  Sender: FDA-Public Use
  Company Number: CN-ASTRAZENECA-2014SE19471

PATIENT
  Age: 26540 Day
  Sex: Female

DRUGS (2)
  1. PULMICORT RESPULES [Suspect]
     Indication: CHRONIC OBSTRUCTIVE PULMONARY DISEASE
     Route: 055
     Dates: end: 20140318
  2. KEBITE [Concomitant]
     Indication: CHRONIC OBSTRUCTIVE PULMONARY DISEASE

REACTIONS (8)
  - Wheezing [Recovering/Resolving]
  - Asthma [Unknown]
  - Pectus excavatum [Unknown]
  - Dyspnoea [Unknown]
  - Hyperhidrosis [Unknown]
  - Heart rate increased [Unknown]
  - Blood pressure increased [Unknown]
  - Rales [Unknown]
